FAERS Safety Report 10423567 (Version 1)
Quarter: 2014Q3

REPORT INFORMATION
  Report Type: Spontaneous
  Country: CH (occurrence: CH)
  Receive Date: 20140902
  Receipt Date: 20140902
  Transmission Date: 20150326
  Serious: Yes (Hospitalization, Other)
  Sender: FDA-Public Use
  Company Number: CH-009507513-1408CHE016760

PATIENT
  Age: 55 Year
  Sex: Male

DRUGS (3)
  1. REMERON [Suspect]
     Active Substance: MIRTAZAPINE
     Dosage: UNK, ONCE
     Route: 048
     Dates: start: 20140310, end: 20140310
  2. ZOLPIDEM TARTRATE. [Suspect]
     Active Substance: ZOLPIDEM TARTRATE
     Dosage: 60 DF, ONCE
     Route: 048
     Dates: start: 20140310, end: 20140310
  3. DULOXETINE HYDROCHLORIDE. [Suspect]
     Active Substance: DULOXETINE HYDROCHLORIDE
     Dosage: 16 DF, ONCE
     Route: 048
     Dates: start: 20140310, end: 20140310

REACTIONS (6)
  - Mydriasis [Recovered/Resolved]
  - Hypertension [Unknown]
  - Coma [Recovered/Resolved]
  - Intentional overdose [Unknown]
  - Tachypnoea [Unknown]
  - Suicide attempt [Recovered/Resolved]

NARRATIVE: CASE EVENT DATE: 20140310
